FAERS Safety Report 8536628-7 (Version None)
Quarter: 2012Q3

REPORT INFORMATION
  Report Type: 
  Country: None (occurrence: None)
  Receive Date: 20120725
  Receipt Date: 20120718
  Transmission Date: 20120928
  Serious: No
  Sender: FDA-Public Use
  Company Number: US-PFIZER INC-2012174877

PATIENT
  Sex: Female

DRUGS (4)
  1. LIPITOR [Suspect]
     Indication: BLOOD CHOLESTEROL INCREASED
     Dosage: UNK, DAILY
     Dates: start: 20100101
  2. ASPIRIN [Interacting]
     Dosage: UNK
  3. VITAMIN B-12 [Interacting]
     Dosage: UNK
  4. SYNTHROID [Interacting]
     Dosage: UNK

REACTIONS (4)
  - DYSURIA [None]
  - DRUG INTERACTION [None]
  - PARAESTHESIA [None]
  - FEELING ABNORMAL [None]
